FAERS Safety Report 7326167-3 (Version None)
Quarter: 2011Q1

REPORT INFORMATION
  Report Type: 
  Country: None (occurrence: None)
  Receive Date: 20110302
  Receipt Date: 20110224
  Transmission Date: 20110831
  Serious: Yes (Hospitalization, Other)
  Sender: FDA-Public Use
  Company Number: US-AMGEN-USASP2011008227

PATIENT
  Age: 62 Year
  Sex: Male

DRUGS (14)
  1. RENA-VITE [Concomitant]
  2. NPLATE [Suspect]
     Indication: IDIOPATHIC THROMBOCYTOPENIC PURPURA
     Dosage: 100 A?G, UNK
     Dates: start: 20101229
  3. NPLATE [Suspect]
     Indication: THROMBOCYTOPENIA
     Dates: start: 20100426, end: 20100625
  4. PLAVIX [Concomitant]
  5. ACCUPRIL [Concomitant]
  6. COUMADIN [Concomitant]
  7. FENTANYL                           /00174602/ [Concomitant]
     Route: 062
  8. PREDNISONE [Concomitant]
  9. DIGOXIN [Concomitant]
  10. ZANTAC                             /00550801/ [Concomitant]
  11. LYRICA [Concomitant]
  12. FLOMAX [Concomitant]
  13. ASA [Concomitant]
  14. COREG [Concomitant]

REACTIONS (2)
  - ACUTE MYOCARDIAL INFARCTION [None]
  - SYSTEMIC LUPUS ERYTHEMATOSUS [None]
